FAERS Safety Report 14975963 (Version 1)
Quarter: 2018Q2

REPORT INFORMATION
  Report Type: Spontaneous
  Country: US (occurrence: US)
  Receive Date: 20180605
  Receipt Date: 20180605
  Transmission Date: 20180711
  Serious: Yes (Other)
  Sender: FDA-Public Use
  Company Number: US-ROCHE-2061598

PATIENT
  Sex: Male

DRUGS (5)
  1. SULFASALAZINE. [Concomitant]
     Active Substance: SULFASALAZINE
     Dosage: DISCONTINUED DUE TO CYTOPENIA
     Route: 065
     Dates: start: 201706, end: 201709
  2. METHOTREXATE. [Concomitant]
     Active Substance: METHOTREXATE
     Dosage: DISCONTINUED DUE TO PANCYTOPENIA
     Route: 065
  3. ACTEMRA [Suspect]
     Active Substance: TOCILIZUMAB
     Indication: RHEUMATOID ARTHRITIS
     Route: 065
     Dates: start: 201612, end: 201703
  4. HYDROXYCHLOROQUINE [Concomitant]
     Active Substance: HYDROXYCHLOROQUINE
     Dosage: ONGOING
     Route: 065
     Dates: start: 201604
  5. XELJANZ [Concomitant]
     Active Substance: TOFACITINIB CITRATE
     Dosage: REFILL#3
     Route: 048

REACTIONS (1)
  - Diverticulitis [Unknown]
